FAERS Safety Report 9416544 (Version 1)
Quarter: 2013Q3

REPORT INFORMATION
  Report Type: Report from Study
  Country: RU (occurrence: RU)
  Receive Date: 20130724
  Receipt Date: 20130724
  Transmission Date: 20140515
  Serious: Yes (Other)
  Sender: FDA-Public Use
  Company Number: RU-ROCHE-1252539

PATIENT
  Sex: Female

DRUGS (2)
  1. PEGASYS [Suspect]
     Indication: HEPATITIS C
     Route: 058
  2. RIBAVIRIN [Suspect]
     Indication: HEPATITIS C
     Route: 048

REACTIONS (1)
  - Leukopenia [Not Recovered/Not Resolved]
